FAERS Safety Report 4364922-2 (Version None)
Quarter: 2004Q2

REPORT INFORMATION
  Report Type: 
  Country: None (occurrence: None)
  Receive Date: 20040524
  Receipt Date: 20010927
  Transmission Date: 20050107
  Serious: Yes (Hospitalization)
  Sender: FDA-Public Use
  Company Number: PERIO-2001-0356

PATIENT
  Age: 75 Year
  Sex: Female

DRUGS (5)
  1. PERIOSTAT [Suspect]
     Indication: PERIODONTAL DISEASE
     Dosage: 20 MG, BID, PER ORAL
     Route: 048
     Dates: start: 20010815, end: 20010823
  2. PERIOSTAT [Suspect]
     Indication: PERIODONTITIS
     Dosage: 20 MG, BID, PER ORAL
     Route: 048
     Dates: start: 20010815, end: 20010823
  3. PERIOSTAT [Suspect]
     Indication: PERIODONTAL DISEASE
     Dosage: 20 MG, BID, PER ORAL
     Route: 048
     Dates: start: 20010830
  4. PERIOSTAT [Suspect]
     Indication: PERIODONTITIS
     Dosage: 20 MG, BID, PER ORAL
     Route: 048
     Dates: start: 20010830
  5. THERASOL [Concomitant]

REACTIONS (1)
  - CEREBROVASCULAR ACCIDENT [None]
